FAERS Safety Report 6804122-7 (Version None)
Quarter: 2010Q2

REPORT INFORMATION
  Report Type: 
  Country: None (occurrence: None)
  Receive Date: 20100628
  Receipt Date: 20071213
  Transmission Date: 20101027
  Serious: No
  Sender: FDA-Public Use
  Company Number: US-PFIZER INC-2006055455

PATIENT
  Sex: Female
  Weight: 55.79 kg

DRUGS (3)
  1. XALATAN [Suspect]
     Indication: GLAUCOMA
     Route: 047
  2. TRUSOPT [Concomitant]
     Route: 047
  3. ALPHAGAN [Concomitant]
     Route: 047

REACTIONS (6)
  - ABNORMAL SENSATION IN EYE [None]
  - DRY EYE [None]
  - EYE BURNS [None]
  - EYE PAIN [None]
  - FEELING ABNORMAL [None]
  - OCULAR HYPERAEMIA [None]
